FAERS Safety Report 6402667-5 (Version None)
Quarter: 2009Q4

REPORT INFORMATION
  Report Type: 
  Country: None (occurrence: None)
  Receive Date: 20091015
  Receipt Date: 20091001
  Transmission Date: 20100525
  Serious: Yes (Hospitalization)
  Sender: FDA-Public Use
  Company Number: DE-AMGEN-UK367173

PATIENT
  Sex: Female

DRUGS (6)
  1. NEULASTA [Suspect]
     Indication: CHEMOTHERAPY
     Route: 065
  2. EPIRUBICIN [Suspect]
     Route: 042
  3. CYCLOPHOSPHAMIDE [Suspect]
     Route: 042
  4. GRANISETRON HCL [Concomitant]
     Route: 042
     Dates: start: 20090824, end: 20090921
  5. FORTECORTIN [Concomitant]
     Route: 042
     Dates: start: 20090824, end: 20090921
  6. UROMITEXAN [Concomitant]
     Route: 042
     Dates: start: 20090824, end: 20090921

REACTIONS (1)
  - FEBRILE NEUTROPENIA [None]
